FAERS Safety Report 5478080-4 (Version None)
Quarter: 2007Q4

REPORT INFORMATION
  Report Type: 
  Country: None (occurrence: None)
  Receive Date: 20071005
  Receipt Date: 20061002
  Transmission Date: 20080405
  Serious: No
  Sender: FDA-Public Use
  Company Number: US-BRISTOL-MYERS SQUIBB COMPANY-13527833

PATIENT
  Age: 77 Year
  Sex: Male

DRUGS (1)
  1. AVAPRO [Suspect]

REACTIONS (1)
  - COUGH [None]
